FAERS Safety Report 4428619-2 (Version None)
Quarter: 2004Q3

REPORT INFORMATION
  Report Type: 
  Country: None (occurrence: None)
  Receive Date: 20040818
  Receipt Date: 20030624
  Transmission Date: 20050211
  Serious: No
  Sender: FDA-Public Use
  Company Number: US-BRISTOL-MYERS SQUIBB COMPANY-12309373

PATIENT
  Sex: Female

DRUGS (5)
  1. TEQUIN [Suspect]
     Route: 042
     Dates: start: 20030623, end: 20030624
  2. FLUOXETINE [Concomitant]
     Route: 048
     Dates: start: 20030623
  3. TOPIRMATE [Concomitant]
     Route: 048
  4. TIZANIDINE HCL [Concomitant]
     Dates: start: 20030623
  5. NORMAL SALINE + POTASSIUM [Concomitant]
     Dates: start: 20030623

REACTIONS (1)
  - INFUSION SITE REACTION [None]
